FAERS Safety Report 20195619 (Version 2)
Quarter: 2022Q1

REPORT INFORMATION
  Report Type: Spontaneous
  Country: CZ (occurrence: CZ)
  Receive Date: 20211216
  Receipt Date: 20220204
  Transmission Date: 20220423
  Serious: Yes (Other)
  Sender: FDA-Public Use
  Company Number: CZ-PFIZER INC-202101756106

PATIENT
  Age: 45 Year
  Sex: Female

DRUGS (5)
  1. MYLOTARG [Suspect]
     Active Substance: GEMTUZUMAB OZOGAMICIN
     Indication: Acute myeloid leukaemia
     Dosage: 1ST INDUCTION 5 MG, INTRAVENOUSLY
     Route: 042
     Dates: start: 20201005, end: 20201005
  2. MYLOTARG [Suspect]
     Active Substance: GEMTUZUMAB OZOGAMICIN
     Dosage: 1ST INDUCTION 5 MG, INTRAVENOUSLY
     Route: 042
     Dates: start: 20201008, end: 20201008
  3. MYLOTARG [Suspect]
     Active Substance: GEMTUZUMAB OZOGAMICIN
     Dosage: 1ST INDUCTION 5 MG, INTRAVENOUSLY
     Route: 042
     Dates: start: 20201011, end: 20201011
  4. DAUNORUBICIN [Concomitant]
     Active Substance: DAUNORUBICIN
     Dosage: 1ST INDUCTION 3 (DAUNORUBICIN 60 MG/M2)
     Dates: start: 20201005, end: 20201011
  5. CYTARABINE [Concomitant]
     Active Substance: CYTARABINE
     Dosage: 1ST INDUCTION 7 (CYTARABINE 200 MG/M2)
     Dates: start: 20201005, end: 20201011

REACTIONS (3)
  - Intestinal haemorrhage [Recovered/Resolved]
  - Colitis [Recovered/Resolved]
  - Mucosal inflammation [Recovered/Resolved]

NARRATIVE: CASE EVENT DATE: 20201014
